FAERS Safety Report 7403030-0 (Version None)
Quarter: 2011Q1

REPORT INFORMATION
  Report Type: 
  Country: None (occurrence: None)
  Receive Date: 20110331
  Receipt Date: 20110223
  Transmission Date: 20110831
  Serious: Yes (Death)
  Sender: FDA-Public Use
  Company Number: 2011MA002827

PATIENT
  Age: 60 Year
  Sex: Female

DRUGS (6)
  1. ONDANSETRON [Concomitant]
  2. DEXAMETHASONE [Concomitant]
  3. CHLORPHENAMINE [Concomitant]
  4. RANITIDINE [Concomitant]
  5. PACLITAXEL [Suspect]
     Dosage: 312 MG; ;IV
     Route: 042
     Dates: start: 20101123, end: 20101221
  6. CISPLATIN [Concomitant]

REACTIONS (1)
  - DEATH [None]
